FAERS Safety Report 6282513-3 (Version None)
Quarter: 2009Q3

REPORT INFORMATION
  Report Type: 
  Country: None (occurrence: None)
  Receive Date: 20090724
  Receipt Date: 20090717
  Transmission Date: 20100115
  Serious: Yes (Death)
  Sender: FDA-Public Use
  Company Number: US-AVENTIS-200916305US

PATIENT
  Sex: Male

DRUGS (1)
  1. LANTUS [Suspect]
     Indication: BLOOD GLUCOSE INCREASED
     Dosage: DOSE: 20 U + 20 U (REINJECTED)
     Route: 058

REACTIONS (2)
  - HYPOGLYCAEMIA [None]
  - OVERDOSE [None]
